FAERS Safety Report 8944573 (Version 1)
Quarter: 2012Q4

REPORT INFORMATION
  Report Type: 
  Country: US (occurrence: US)
  Receive Date: 20121204
  Receipt Date: 20121204
  Transmission Date: 20130627
  Serious: No
  Sender: FDA-Public Use
  Company Number: US-AMGEN-USASP2012060991

PATIENT
  Age: 50 Year
  Sex: Female

DRUGS (2)
  1. ENBREL [Suspect]
     Indication: RHEUMATOID ARTHRITIS
     Dosage: 50 mg, qwk
     Dates: start: 20120629
  2. METHOTREXATE [Concomitant]
     Dosage: 0.7 UNK, UNK

REACTIONS (2)
  - Nausea [Recovered/Resolved]
  - Fatigue [Recovered/Resolved]
